FAERS Safety Report 22131936 (Version 1)
Quarter: 2023Q1

REPORT INFORMATION
  Report Type: Report from Study
  Country: US (occurrence: US)
  Receive Date: 20230323
  Receipt Date: 20230323
  Transmission Date: 20230418
  Serious: Yes (Hospitalization, Other)
  Sender: FDA-Public Use
  Company Number: US-ASTELLAS-2023US008687

PATIENT
  Age: 62 Year
  Sex: Male

DRUGS (1)
  1. ENZALUTAMIDE [Suspect]
     Active Substance: ENZALUTAMIDE
     Indication: Product used for unknown indication
     Route: 065

REACTIONS (23)
  - Dyspnoea [Unknown]
  - Brain hypoxia [Unknown]
  - Sleep deficit [Unknown]
  - Candida infection [Unknown]
  - Neuropathy peripheral [Unknown]
  - Pharyngitis [Unknown]
  - Rhinitis [Unknown]
  - Sinusitis [Unknown]
  - Feeling abnormal [Unknown]
  - Confusional state [Unknown]
  - COVID-19 [Recovering/Resolving]
  - Paranasal sinus discomfort [Unknown]
  - Nasal polyps [Unknown]
  - Visual impairment [Unknown]
  - Fear of death [Unknown]
  - Dry mouth [Unknown]
  - Illness [Unknown]
  - Weight decreased [Unknown]
  - Pharyngeal swelling [Unknown]
  - Dysphagia [Unknown]
  - Anosmia [Unknown]
  - Taste disorder [Unknown]
  - Asthenia [Unknown]

NARRATIVE: CASE EVENT DATE: 20230201
